FAERS Safety Report 7036070-4 (Version None)
Quarter: 2010Q4

REPORT INFORMATION
  Report Type: 
  Country: None (occurrence: None)
  Receive Date: 20101007
  Receipt Date: 20101007
  Transmission Date: 20110411
  Serious: Yes (Other)
  Sender: FDA-Public Use
  Company Number: None

PATIENT
  Sex: Female

DRUGS (1)
  1. OMALIZUMAB 150 MG GENENTECH [Suspect]
     Indication: ASTHMA
     Dosage: 300 MG Q MONTHLY SQ
     Route: 058
     Dates: start: 20060801, end: 20100713

REACTIONS (4)
  - HYPOAESTHESIA [None]
  - INJECTION SITE PAIN [None]
  - PARAESTHESIA [None]
  - WRONG TECHNIQUE IN DRUG USAGE PROCESS [None]
